FAERS Safety Report 15281975 (Version 1)
Quarter: 2018Q3

REPORT INFORMATION
  Report Type: Report from Study
  Country: US (occurrence: US)
  Receive Date: 20180815
  Receipt Date: 20180815
  Transmission Date: 20181010
  Serious: Yes (Hospitalization, Other)
  Sender: FDA-Public Use
  Company Number: US-GILEAD-2018-0355494

PATIENT
  Age: 11 Year
  Sex: Male

DRUGS (17)
  1. PULMOZYME [Suspect]
     Active Substance: DORNASE ALFA
     Indication: CYSTIC FIBROSIS
     Dosage: 1 VIAL QD
     Route: 055
     Dates: start: 20150416
  2. VENTOLIN [Suspect]
     Active Substance: ALBUTEROL SULFATE
     Indication: CYSTIC FIBROSIS
     Dosage: 2?4 PUFFS Q4HR
     Route: 055
  3. FLUTICASONE. [Suspect]
     Active Substance: FLUTICASONE
     Indication: CYSTIC FIBROSIS
     Dosage: USE 1 SPRAY IN EACH NOSTRIL DAILY
     Route: 045
  4. DULERA [Suspect]
     Active Substance: FORMOTEROL FUMARATE DIHYDRATE\MOMETASONE FUROATE
     Indication: CYSTIC FIBROSIS
     Dosage: INHALE 2 PUFFS BID
     Route: 055
  5. ALBUTEROL                          /00139501/ [Suspect]
     Active Substance: ALBUTEROL
     Indication: CYSTIC FIBROSIS
     Dosage: INHALE 1 VIAL EVERY 6 HOURS AS NEEDED
     Route: 055
  6. HUMALOG [Suspect]
     Active Substance: INSULIN LISPRO
     Indication: PRODUCT USED FOR UNKNOWN INDICATION
     Dosage: UNK
     Route: 065
     Dates: start: 20170817
  7. CETIRIZINE [Suspect]
     Active Substance: CETIRIZINE HYDROCHLORIDE
     Indication: CYSTIC FIBROSIS
     Dosage: TK 1 TAB PO DAILY
     Route: 048
  8. SODIUM CHLORIDE. [Suspect]
     Active Substance: SODIUM CHLORIDE
     Indication: CYSTIC FIBROSIS
     Dosage: INHALE 1 VIAL BID
     Route: 055
  9. SERTRALINE [Suspect]
     Active Substance: SERTRALINE HYDROCHLORIDE
     Indication: CYSTIC FIBROSIS
     Dosage: 1 TAB PO DAILY
     Route: 048
  10. CULTURELLE [Suspect]
     Active Substance: LACTOBACILLUS RHAMNOSUS
     Indication: CYSTIC FIBROSIS
     Dosage: 1 CAP PO BID
     Route: 048
  11. MONTELUKAST [Suspect]
     Active Substance: MONTELUKAST SODIUM
     Indication: CYSTIC FIBROSIS
     Dosage: CHEW AND SWALLOW 1 TAB DAILY
     Route: 048
  12. LANTUS [Suspect]
     Active Substance: INSULIN GLARGINE
     Indication: PRODUCT USED FOR UNKNOWN INDICATION
     Route: 065
  13. ORKAMBI [Suspect]
     Active Substance: IVACAFTOR\LUMACAFTOR
     Indication: CYSTIC FIBROSIS
     Dosage: 2 TABS BID
     Route: 048
     Dates: start: 20170717
  14. CREON [Suspect]
     Active Substance: PANCRELIPASE AMYLASE\PANCRELIPASE LIPASE\PANCRELIPASE PROTEASE
     Indication: CYSTIC FIBROSIS
     Dosage: TK 2?3 CAPS PO WITH MEALS AND TK 1?2 CAPS WITH A SNACK
     Route: 048
  15. BASAGLAR [Suspect]
     Active Substance: INSULIN GLARGINE
     Indication: CYSTIC FIBROSIS
     Dosage: 13 UNITS DAILY INJECTION
     Route: 065
  16. AZTREONAM LYSINE [Suspect]
     Active Substance: AZTREONAM LYSINE
     Indication: CYSTIC FIBROSIS
     Dosage: 1 VIAL 3X DAILY, 28 DAYS ON, 28 DAYS OFF
     Route: 055
     Dates: start: 20180227
  17. SINGULAIR [Suspect]
     Active Substance: MONTELUKAST SODIUM
     Indication: PRODUCT USED FOR UNKNOWN INDICATION
     Route: 065

REACTIONS (1)
  - Cystic fibrosis [Unknown]

NARRATIVE: CASE EVENT DATE: 20180807
